FAERS Safety Report 8192760-1 (Version None)
Quarter: 2012Q1

REPORT INFORMATION
  Report Type: 
  Country: None (occurrence: None)
  Receive Date: 20120308
  Receipt Date: 20120305
  Transmission Date: 20120608
  Serious: No
  Sender: FDA-Public Use
  Company Number: US-PFIZER INC-2012058887

PATIENT
  Sex: Female
  Weight: 57.596 kg

DRUGS (6)
  1. ALBUTEROL SULFATE [Concomitant]
     Indication: EMPHYSEMA
     Dosage: UNK, 4X/DAY
  2. SYMBICORT [Concomitant]
     Indication: EMPHYSEMA
     Dosage: 160/4.5 MCG, 2X/DAY
  3. SPIRIVA [Concomitant]
     Indication: EMPHYSEMA
     Dosage: UNK, DAILY
  4. LISINOPRIL [Concomitant]
     Indication: HYPERTENSION
     Dosage: 10 MG, DAILY
  5. ALBUTEROL SULFATE [Concomitant]
     Indication: INHALATION THERAPY
  6. IBUPROFEN (ADVIL) [Suspect]
     Indication: PAIN
     Dosage: UNK, DAILY

REACTIONS (1)
  - URTICARIA [None]
